FAERS Safety Report 6618548-8 (Version None)
Quarter: 2010Q1

REPORT INFORMATION
  Report Type: 
  Country: None (occurrence: None)
  Receive Date: 20100223
  Receipt Date: 20091204
  Transmission Date: 20100710
  Serious: No
  Sender: FDA-Public Use
  Company Number: 004253

PATIENT
  Sex: Male

DRUGS (1)
  1. CIMZIA [Suspect]
     Dosage: (200 MG 1X/2 WEEKS)

REACTIONS (3)
  - DEHYDRATION [None]
  - EMOTIONAL DISTRESS [None]
  - TOOTH EROSION [None]
